FAERS Safety Report 17292216 (Version 1)
Quarter: 2020Q1

REPORT INFORMATION
  Report Type: Spontaneous
  Country: DE (occurrence: DE)
  Receive Date: 20200121
  Receipt Date: 20200121
  Transmission Date: 20200409
  Serious: Yes (Other)
  Sender: FDA-Public Use
  Company Number: DE-BAYER-2019-220729

PATIENT
  Age: 34 Year
  Sex: Female
  Weight: 110 kg

DRUGS (1)
  1. KYLEENA [Suspect]
     Active Substance: LEVONORGESTREL
     Dosage: 17.5 MCG/24HR, CONT
     Route: 015
     Dates: start: 20191017, end: 20191204

REACTIONS (5)
  - Mental status changes [None]
  - Aggression [None]
  - Weight increased [None]
  - Depressed mood [None]
  - Genital haemorrhage [None]

NARRATIVE: CASE EVENT DATE: 20191017
